FAERS Safety Report 8975008 (Version 1)
Quarter: 2012Q4

REPORT INFORMATION
  Report Type: 
  Country: DE (occurrence: DE)
  Receive Date: 20121219
  Receipt Date: 20121219
  Transmission Date: 20130627
  Serious: Yes (Other)
  Sender: FDA-Public Use
  Company Number: DE-ELI_LILLY_AND_COMPANY-DE201212004091

PATIENT
  Age: 16 Year
  Sex: Male

DRUGS (3)
  1. STRATTERA [Suspect]
     Dosage: 40 mg, each morning
     Route: 048
  2. STRATTERA [Interacting]
     Dosage: 60 mg, each morning
     Route: 048
     Dates: start: 201209
  3. MIRTAZAPINE [Interacting]
     Indication: DEPRESSION
     Dosage: 7.5 mg, UNK

REACTIONS (6)
  - Self injurious behaviour [Unknown]
  - Aggression [Unknown]
  - Sleep disorder [Unknown]
  - Weight decreased [Unknown]
  - Depressive symptom [Unknown]
  - Drug interaction [Unknown]
